FAERS Safety Report 9295943 (Version 1)
Quarter: 2013Q1

REPORT INFORMATION
  Report Type: Spontaneous
  Country: US (occurrence: None)
  Receive Date: 20121227
  Receipt Date: 20121227
  Transmission Date: 20140127
  Serious: Yes (Death)
  Sender: FDA-Public Use
  Company Number: PHEH2012US003552

PATIENT
  Age: 50 Year
  Sex: Female

DRUGS (1)
  1. EXJADE (*CGP 72670*) DISPERSIBLE TABLET, 500MG [Suspect]
     Indication: IRON OVERLOAD
     Route: 048

REACTIONS (3)
  - Hepatic failure [None]
  - Neoplasm [None]
  - Malignant neoplasm progression [None]
